FAERS Safety Report 16140803 (Version 1)
Quarter: 2019Q2

REPORT INFORMATION
  Report Type: Spontaneous
  Country: US (occurrence: US)
  Receive Date: 20190330
  Receipt Date: 20190330
  Transmission Date: 20190711
  Serious: No
  Sender: FDA-Public Use
  Company Number: None

PATIENT
  Age: 44 Year
  Sex: Male
  Weight: 96.75 kg

DRUGS (4)
  1. NORCO [Concomitant]
     Active Substance: ACETAMINOPHEN\HYDROCODONE BITARTRATE
  2. FISH OIL [Concomitant]
     Active Substance: FISH OIL
  3. LISINOPRIL. [Concomitant]
     Active Substance: LISINOPRIL
  4. ATORVASTATIN 20MG TABLETS [Suspect]
     Active Substance: ATORVASTATIN
     Indication: BLOOD CHOLESTEROL INCREASED
     Dosage: ?          QUANTITY:1 TABLET(S);OTHER FREQUENCY:EVERY EVENING;?
     Route: 048
     Dates: start: 20190321, end: 20190328

REACTIONS (12)
  - Myalgia [None]
  - Vision blurred [None]
  - Muscle spasms [None]
  - Nasal pruritus [None]
  - Erythema [None]
  - Tendon pain [None]
  - Abdominal pain upper [None]
  - Joint stiffness [None]
  - Blepharospasm [None]
  - Abdominal distension [None]
  - Chest pain [None]
  - Pain in extremity [None]

NARRATIVE: CASE EVENT DATE: 20190328
